FAERS Safety Report 9795806 (Version 8)
Quarter: 2015Q1

REPORT INFORMATION
  Report Type: Report from Study
  Country: IT (occurrence: IT)
  Receive Date: 20140103
  Receipt Date: 20150212
  Transmission Date: 20150721
  Serious: Yes (Hospitalization)
  Sender: FDA-Public Use
  Company Number: IT-ROCHE-1015695

PATIENT
  Age: 63 Year
  Sex: Female
  Weight: 50 kg

DRUGS (30)
  1. ALLOPURINOL. [Concomitant]
     Active Substance: ALLOPURINOL
     Indication: TUMOUR LYSIS SYNDROME
     Route: 065
     Dates: start: 20111108, end: 20111120
  2. BACTRIM [Concomitant]
     Active Substance: SULFAMETHOXAZOLE\TRIMETHOPRIM
     Indication: PROPHYLAXIS
     Route: 065
     Dates: start: 20111108
  3. URBASON [Concomitant]
     Active Substance: METHYLPREDNISOLONE
     Indication: PREMEDICATION
     Route: 065
     Dates: start: 20111118, end: 20120426
  4. RANITIDINE [Concomitant]
     Active Substance: RANITIDINE\RANITIDINE HYDROCHLORIDE
     Indication: ABDOMINAL PAIN UPPER
  5. VINCRISTINE [Suspect]
     Active Substance: VINCRISTINE
     Indication: DIFFUSE LARGE B-CELL LYMPHOMA
     Dosage: LAST DOSE PRIOR TO THROMBOCYTOPENIA, INFUSION RELATED REACTION, PNEUMONITIS AND 1ST EPISODE NEUTROPE
     Route: 042
     Dates: start: 20111114
  6. NICETILE [Concomitant]
     Active Substance: ACETYLCARNITINE HYDROCHLORIDE
     Indication: INFLAMMATION
     Route: 065
     Dates: start: 20111108
  7. PREGABALIN. [Concomitant]
     Active Substance: PREGABALIN
     Indication: POST HERPETIC NEURALGIA
     Route: 065
     Dates: start: 20111122, end: 20111205
  8. METHOTREXATE [Concomitant]
     Active Substance: METHOTREXATE
     Route: 037
     Dates: start: 20120123, end: 20120123
  9. ZOFRAN [Concomitant]
     Active Substance: ONDANSETRON HYDROCHLORIDE
     Indication: NAUSEA
     Route: 065
     Dates: start: 20111121, end: 20111121
  10. LAEVOLAC [Concomitant]
     Active Substance: LACTULOSE
     Indication: CONSTIPATION
     Route: 065
     Dates: start: 20111124, end: 20111127
  11. CYCLOPHOSPHAMIDE. [Suspect]
     Active Substance: CYCLOPHOSPHAMIDE
     Indication: DIFFUSE LARGE B-CELL LYMPHOMA
     Dosage: LAST DOSE PRIOR TO THROMBOCYTOPENIA, INFUSION RELATED REACTION, PNEUMONITIS AND 1ST EPISODE NEUTROPE
     Route: 042
     Dates: start: 20111114
  12. PREDNISOLONE. [Suspect]
     Active Substance: PREDNISOLONE
     Indication: DIFFUSE LARGE B-CELL LYMPHOMA
     Dosage: LAST DOSE PRIOR TO INFUSION RELATED REACTION: 14/NOV/2011 AT 100MG?LAST DOSE PRIOR TO THROMBOCYTOPEN
     Route: 048
     Dates: start: 20111114
  13. FLUCONAZOLE. [Concomitant]
     Active Substance: FLUCONAZOLE
     Indication: MUCOSAL INFLAMMATION
     Route: 065
     Dates: start: 20111124, end: 20111215
  14. DEXAMETHASONE. [Concomitant]
     Active Substance: DEXAMETHASONE
     Indication: HEADACHE
     Route: 065
     Dates: start: 20120123, end: 20120125
  15. VELAMOX [Concomitant]
     Active Substance: AMOXICILLIN
     Indication: PROPHYLAXIS
     Route: 065
     Dates: start: 20111028
  16. PARACETAMOL [Concomitant]
     Active Substance: ACETAMINOPHEN
     Indication: PYREXIA
     Route: 065
     Dates: start: 20111118, end: 20120426
  17. RANITIDINE [Concomitant]
     Active Substance: RANITIDINE\RANITIDINE HYDROCHLORIDE
     Indication: NAUSEA
     Route: 065
     Dates: start: 20111121, end: 20111121
  18. ZOFRAN [Concomitant]
     Active Substance: ONDANSETRON HYDROCHLORIDE
     Indication: ABDOMINAL PAIN UPPER
  19. PARACETAMOL [Concomitant]
     Active Substance: ACETAMINOPHEN
     Indication: PREMEDICATION
     Route: 065
     Dates: start: 20111122, end: 20111125
  20. TRIMETON (CHLORPHENIRAMINE MALEATE) [Concomitant]
     Indication: PREMEDICATION
     Route: 065
     Dates: start: 20111118, end: 20120426
  21. LANSOPRAZOLE. [Concomitant]
     Active Substance: LANSOPRAZOLE
     Indication: GASTRITIS
     Route: 065
     Dates: start: 20111103
  22. BACTRIM [Concomitant]
     Active Substance: SULFAMETHOXAZOLE\TRIMETHOPRIM
     Indication: INFECTION
  23. KLACID (ITALY) [Concomitant]
     Indication: ANTIBIOTIC PROPHYLAXIS
     Route: 065
     Dates: start: 20111028
  24. TAZOBACTAM/PIPERACILLIN [Concomitant]
     Active Substance: PIPERACILLIN SODIUM\TAZOBACTAM SODIUM
     Indication: PROPHYLAXIS
     Route: 065
     Dates: start: 20111122, end: 20111205
  25. OMEPRAZOLE. [Concomitant]
     Active Substance: OMEPRAZOLE
     Indication: GASTRITIS
     Route: 065
     Dates: start: 20111122, end: 20111205
  26. OBINUTUZUMAB [Suspect]
     Active Substance: OBINUTUZUMAB
     Indication: DIFFUSE LARGE B-CELL LYMPHOMA
     Dosage: LAST DOSE PRIOR TO THROMBOCYTOPENIA, INFUSION RELATED REACTION AND PNEUMONITIS 21/NOV/2011 VOLUME: 2
     Route: 042
     Dates: start: 20111114
  27. DOXORUBICIN [Suspect]
     Active Substance: DOXORUBICIN
     Indication: DIFFUSE LARGE B-CELL LYMPHOMA
     Dosage: LAST DOSE PRIOR TO THROMBOCYTOPENIA, INFUSION RELATED REACTION, PNEUMONITIS AND 1ST EPISODE NEUTROPE
     Route: 042
     Dates: start: 20111114
  28. ACYCLOVIR. [Concomitant]
     Active Substance: ACYCLOVIR
     Route: 065
     Dates: start: 20111118
  29. PLASIL [Concomitant]
     Active Substance: METOCLOPRAMIDE HYDROCHLORIDE
     Indication: VOMITING
     Route: 065
     Dates: start: 20111122, end: 20111122
  30. PLASIL [Concomitant]
     Active Substance: METOCLOPRAMIDE HYDROCHLORIDE
     Indication: NAUSEA
     Route: 065
     Dates: start: 20111125, end: 20111125

REACTIONS (5)
  - Infusion related reaction [Recovered/Resolved]
  - Hypertransaminasaemia [Recovering/Resolving]
  - Thrombocytopenia [Recovered/Resolved]
  - Neutropenia [Recovered/Resolved]
  - Pyrexia [Recovered/Resolved]

NARRATIVE: CASE EVENT DATE: 20111122
